FAERS Safety Report 25210780 (Version 7)
Quarter: 2025Q2

REPORT INFORMATION
  Report Type: Report from Study
  Country: FR (occurrence: FR)
  Receive Date: 20250417
  Receipt Date: 20250624
  Transmission Date: 20250716
  Serious: Yes (Hospitalization, Other)
  Sender: BIOGEN
  Company Number: FR-BIOGEN-2025BI01307633

PATIENT
  Age: 47 Year
  Sex: Male
  Weight: 92 kg

DRUGS (15)
  1. OMAVELOXOLONE [Interacting]
     Active Substance: OMAVELOXOLONE
     Indication: Friedreich^s ataxia
     Dosage: 3 CAPSULES OF 50MG IN THE MORNING; PLANNED DURATION: 3 MONTHS
     Route: 050
     Dates: start: 202406, end: 20250416
  2. XARELTO [Interacting]
     Active Substance: RIVAROXABAN
     Indication: Cardiomyopathy
     Dosage: 1 TABLET IN THE EVENING
     Route: 050
  3. XARELTO [Interacting]
     Active Substance: RIVAROXABAN
     Route: 050
  4. IDEBENONE [Concomitant]
     Active Substance: IDEBENONE
     Indication: Product used for unknown indication
     Dosage: 45MG TABLET; 3 TABLETS (135 MG) IN THE MORNING AND EVENING
     Route: 050
     Dates: start: 20190601
  5. LYRICA [Concomitant]
     Active Substance: PREGABALIN
     Indication: Product used for unknown indication
     Dosage: 1 TABLET IN THE MORNING, 2 TABLETS IN THE EVENING
     Route: 050
  6. INSULIN HUMAN [Concomitant]
     Active Substance: INSULIN HUMAN
     Indication: Product used for unknown indication
     Dosage: MORNING AND EVENING
     Route: 050
  7. NOVORAPID [Concomitant]
     Active Substance: INSULIN ASPART
     Indication: Product used for unknown indication
     Route: 050
  8. BISOPROLOL [Concomitant]
     Active Substance: BISOPROLOL
     Indication: Atrial fibrillation
     Dosage: 1 TABLET IN THE MORNING
     Route: 050
  9. FLECAINIDE [Concomitant]
     Active Substance: FLECAINIDE
     Indication: Atrial fibrillation
     Dosage: 1 CAPSULE IN THE MORNING
     Route: 050
  10. LIORESAL [Concomitant]
     Active Substance: BACLOFEN
     Indication: Product used for unknown indication
     Dosage: 2 TABLETS (20 MG) IN THE MORNING, AT MIDDAY, AND IN THE EVENING
     Route: 050
  11. BENZALKONIUM CHLORIDE\BENZYL ALCOHOL\CHLORHEXIDINE [Concomitant]
     Active Substance: BENZALKONIUM CHLORIDE\BENZYL ALCOHOL\CHLORHEXIDINE
     Indication: Product used for unknown indication
     Dosage: 1 APPLICATION PER DAY
     Route: 050
  12. CHOLECALCIFEROL [Concomitant]
     Active Substance: CHOLECALCIFEROL
     Indication: Product used for unknown indication
     Route: 050
  13. IBUPROFEN [Concomitant]
     Active Substance: IBUPROFEN
     Indication: Product used for unknown indication
     Dosage: MORNING AND EVENING
     Route: 050
     Dates: start: 20250326
  14. DOLIPRANE [Concomitant]
     Active Substance: ACETAMINOPHEN
     Indication: Product used for unknown indication
     Route: 050
  15. SEA WATER [Concomitant]
     Active Substance: SEA WATER
     Indication: Product used for unknown indication
     Route: 050

REACTIONS (7)
  - Renal embolism [Not Recovered/Not Resolved]
  - Embolism arterial [Not Recovered/Not Resolved]
  - Renal infarct [Unknown]
  - Atrial fibrillation [Unknown]
  - Drug interaction [Unknown]
  - Alanine aminotransferase increased [Unknown]
  - Aspartate aminotransferase increased [Unknown]

NARRATIVE: CASE EVENT DATE: 20240901
